FAERS Safety Report 8136014-8 (Version None)
Quarter: 2012Q1

REPORT INFORMATION
  Report Type: 
  Country: None (occurrence: None)
  Receive Date: 20120214
  Receipt Date: 20120209
  Transmission Date: 20120608
  Serious: Yes (Hospitalization, Other)
  Sender: FDA-Public Use
  Company Number: US-PFIZER INC-2011298770

PATIENT
  Sex: Female

DRUGS (3)
  1. ZOLPIDEM [Concomitant]
     Indication: SLEEP APNOEA SYNDROME
     Dosage: UNK
     Dates: start: 20070515
  2. AMBIEN [Concomitant]
     Indication: SLEEP APNOEA SYNDROME
     Dosage: UNK
     Dates: start: 20050101
  3. CHANTIX [Suspect]
     Indication: SMOKING CESSATION THERAPY
     Dosage: 0.5MG AND 1MG, UNK
     Dates: start: 20080101, end: 20080501

REACTIONS (7)
  - ANXIETY [None]
  - HALLUCINATION [None]
  - SUICIDAL BEHAVIOUR [None]
  - LOSS OF CONSCIOUSNESS [None]
  - DEPRESSION [None]
  - AGGRESSION [None]
  - MENTAL DISORDER [None]
